FAERS Safety Report 17120043 (Version 14)
Quarter: 2022Q2

REPORT INFORMATION
  Report Type: Spontaneous
  Country: JP (occurrence: JP)
  Receive Date: 20191206
  Receipt Date: 20220614
  Transmission Date: 20220721
  Serious: Yes (Hospitalization, Other)
  Sender: FDA-Public Use
  Company Number: JP-BRISTOL-MYERS SQUIBB COMPANY-BMS-2019-116594

PATIENT
  Age: 54 Year
  Sex: Female
  Weight: 49 kg

DRUGS (10)
  1. OPDIVO [Suspect]
     Active Substance: NIVOLUMAB
     Indication: Metastatic renal cell carcinoma
     Dosage: 240 MILLIGRAM
     Route: 041
     Dates: start: 20190808, end: 20190919
  2. OPDIVO [Suspect]
     Active Substance: NIVOLUMAB
     Dosage: 240 MILLIGRAM
     Route: 041
     Dates: start: 20191031
  3. YERVOY [Suspect]
     Active Substance: IPILIMUMAB
     Indication: Metastatic renal cell carcinoma
     Dosage: 54.4 MILLIGRAM
     Route: 041
     Dates: start: 20190808, end: 20190919
  4. YERVOY [Suspect]
     Active Substance: IPILIMUMAB
     Dosage: 50 MILLIGRAM
     Route: 041
     Dates: start: 20191031, end: 20191031
  5. OXYCODONE [Concomitant]
     Active Substance: OXYCODONE
     Dosage: 5 MG, Q12H
     Route: 048
     Dates: start: 20190815
  6. OXYCODONE [Concomitant]
     Active Substance: OXYCODONE
     Indication: Product used for unknown indication
  7. MAGNESIUM OXIDE [Concomitant]
     Active Substance: MAGNESIUM OXIDE
     Dosage: 330 MG, Q8H
     Route: 048
     Dates: start: 20190809
  8. MAGNESIUM OXIDE [Concomitant]
     Active Substance: MAGNESIUM OXIDE
     Indication: Product used for unknown indication
  9. SYMPROIC [Concomitant]
     Active Substance: NALDEMEDINE
     Indication: Prophylaxis
     Dosage: 0.2 MG, EVERYDAY
     Route: 048
     Dates: start: 20190910
  10. NAPROXEN [Concomitant]
     Active Substance: NAPROXEN
     Indication: Product used for unknown indication
     Dosage: 100 MG, Q8H
     Route: 048
     Dates: start: 20190815

REACTIONS (4)
  - Aplasia pure red cell [Recovering/Resolving]
  - Fulminant type 1 diabetes mellitus [Recovering/Resolving]
  - Platelet count decreased [Recovering/Resolving]
  - Thyroiditis subacute [Recovering/Resolving]

NARRATIVE: CASE EVENT DATE: 20190901
